FAERS Safety Report 5262661-7 (Version None)
Quarter: 2007Q1

REPORT INFORMATION
  Report Type: 
  Country: None (occurrence: None)
  Receive Date: 20070312
  Receipt Date: 20070301
  Transmission Date: 20070707
  Serious: Yes (Death)
  Sender: FDA-Public Use
  Company Number: US-BAXTER-2007BH002761

PATIENT
  Age: 70 Year
  Sex: Male

DRUGS (3)
  1. FEIBA VH IMMUNO [Suspect]
     Indication: FACTOR IX INHIBITION
     Dosage: DOSE UNIT:UNKNOWN
     Route: 065
  2. RECOMBINANT FACTOR VIIA [Suspect]
     Indication: FACTOR IX INHIBITION
     Dosage: DOSE UNIT:UNKNOWN
     Route: 065
  3. TRANEXAMIC ACID [Suspect]
     Indication: DRUG USE FOR UNKNOWN INDICATION
     Dosage: DOSE UNIT:UNKNOWN
     Route: 065

REACTIONS (1)
  - DISSEMINATED INTRAVASCULAR COAGULATION [None]
